FAERS Safety Report 8312571-3 (Version None)
Quarter: 2012Q2

REPORT INFORMATION
  Report Type: 
  Country: None (occurrence: None)
  Receive Date: 20120424
  Receipt Date: 20120409
  Transmission Date: 20120825
  Serious: Yes (Hospitalization)
  Sender: FDA-Public Use
  Company Number: 12AE004

PATIENT
  Sex: Female

DRUGS (1)
  1. APAP 325MG, PHENYLEPHRINE HCI 5MG, GUAIFENESIN 200MG [Suspect]
     Indication: SINUS HEADACHE
     Dosage: 2 TABLETS FOR 2 DAYS
     Dates: start: 20120331, end: 20120401

REACTIONS (6)
  - FALL [None]
  - CEREBROVASCULAR ACCIDENT [None]
  - FEELING DRUNK [None]
  - DRUG SCREEN POSITIVE [None]
  - MALAISE [None]
  - VISION BLURRED [None]
